FAERS Safety Report 22690416 (Version 3)
Quarter: 2024Q1

REPORT INFORMATION
  Report Type: Report from Study
  Country: US (occurrence: US)
  Receive Date: 20230711
  Receipt Date: 20240306
  Transmission Date: 20240410
  Serious: No
  Sender: FDA-Public Use
  Company Number: US-SA-SAC20230710000361

PATIENT
  Age: 80 Year
  Sex: Male
  Weight: 64 kg

DRUGS (1)
  1. JEVTANA [Suspect]
     Active Substance: CABAZITAXEL
     Indication: Prostate cancer
     Dosage: 60MG/1.5ML,Q3W
     Route: 041
     Dates: start: 20221228

REACTIONS (2)
  - Weight increased [Unknown]
  - Weight decreased [Unknown]

NARRATIVE: CASE EVENT DATE: 20240119
